FAERS Safety Report 9342484 (Version 1)
Quarter: 2013Q2

REPORT INFORMATION
  Report Type: Spontaneous
  Country: US (occurrence: None)
  Receive Date: 20130528
  Receipt Date: 20130528
  Transmission Date: 20140414
  Serious: Yes (Other)
  Sender: FDA-Public Use
  Company Number: AUR-APL-2013-02465

PATIENT
  Age: 62 Year
  Sex: Female

DRUGS (5)
  1. VENLAFAXINE (VENLAFAXINE) [Suspect]
  2. TRAMADOL HCL [Suspect]
     Dosage: 1/2 TO 1 TAB 1-4 TIMES A DAY AS REQUIRED
     Route: 048
     Dates: start: 200911, end: 20110920
  3. SEREVENT [Suspect]
     Route: 055
     Dates: start: 2010, end: 2012
  4. SEREVENT [Suspect]
     Route: 055
     Dates: start: 2010, end: 2012
  5. SEREVENT [Suspect]
     Route: 055
     Dates: start: 2010, end: 2012

REACTIONS (6)
  - Tremor [None]
  - Major depression [None]
  - Headache [None]
  - Drug ineffective [None]
  - Nightmare [None]
  - Gastrointestinal disorder [None]
